FAERS Safety Report 16458294 (Version 1)
Quarter: 2019Q2

REPORT INFORMATION
  Report Type: Spontaneous
  Country: US (occurrence: US)
  Receive Date: 20190620
  Receipt Date: 20190620
  Transmission Date: 20190711
  Serious: Yes (Other)
  Sender: FDA-Public Use
  Company Number: US-GLAXOSMITHKLINE-US2019AMR110226

PATIENT
  Age: 54 Year
  Sex: Female

DRUGS (1)
  1. VENTOLIN HFA [Suspect]
     Active Substance: ALBUTEROL SULFATE
     Indication: PRODUCT USED FOR UNKNOWN INDICATION
     Dosage: UNK
     Route: 055
     Dates: start: 2012

REACTIONS (5)
  - Overdose [Unknown]
  - Dyspnoea [Unknown]
  - Intentional product misuse [Unknown]
  - Myocardial infarction [Unknown]
  - Humidity intolerance [Unknown]

NARRATIVE: CASE EVENT DATE: 20170829
